FAERS Safety Report 4303458-1 (Version None)
Quarter: 2004Q1

REPORT INFORMATION
  Report Type: 
  Country: None (occurrence: None)
  Receive Date: 20040223
  Receipt Date: 20040210
  Transmission Date: 20041129
  Serious: Yes (Hospitalization)
  Sender: FDA-Public Use
  Company Number: 2004-BP-00731BP

PATIENT
  Age: 81 Year
  Sex: Male
  Weight: 61.2 kg

DRUGS (10)
  1. MICARDIS [Suspect]
     Indication: CEREBROVASCULAR ACCIDENT PROPHYLAXIS
     Dosage: PO
     Route: 048
     Dates: start: 20030602
  2. MICARDIS [Suspect]
     Indication: MYOCARDIAL INFARCTION
     Dosage: PO
     Route: 048
     Dates: start: 20030602
  3. RAMIPRIL [Suspect]
     Indication: CEREBROVASCULAR ACCIDENT PROPHYLAXIS
     Dosage: PO
     Route: 048
     Dates: start: 20030602
  4. RAMIPRIL [Suspect]
     Indication: MYOCARDIAL INFARCTION
     Dosage: PO
     Route: 048
     Dates: start: 20030602
  5. FUROSEMIDE [Suspect]
     Indication: CARDIOVASCULAR DISORDER
     Dates: end: 20040101
  6. FUROSEMIDE [Suspect]
     Indication: PROPHYLAXIS
     Dates: end: 20040101
  7. FLOMAX [Suspect]
     Dates: end: 20040112
  8. DIGOXIN [Concomitant]
  9. WARFARIN SODIUM [Concomitant]
  10. IRON SUPPLEMENT [Concomitant]

REACTIONS (2)
  - HYPOTENSION [None]
  - SYNCOPE [None]
